FAERS Safety Report 9751071 (Version 1)
Quarter: 2013Q4

REPORT INFORMATION
  Report Type: Spontaneous
  Country: US (occurrence: US)
  Receive Date: 20131212
  Receipt Date: 20131212
  Transmission Date: 20140711
  Serious: No
  Sender: FDA-Public Use
  Company Number: US-TEVA-400980USA

PATIENT
  Age: 42 Year
  Sex: Female
  Weight: 52.21 kg

DRUGS (1)
  1. PARAGARD 380A [Suspect]
     Indication: CONTRACEPTION
     Route: 015
     Dates: start: 20130107, end: 20130424

REACTIONS (2)
  - Vaginal discharge [Not Recovered/Not Resolved]
  - Vaginal infection [Not Recovered/Not Resolved]
